FAERS Safety Report 4516243-2 (Version None)
Quarter: 2004Q4

REPORT INFORMATION
  Report Type: 
  Country: None (occurrence: None)
  Receive Date: 20041201
  Receipt Date: 20041201
  Transmission Date: 20050328
  Serious: No
  Sender: FDA-Public Use
  Company Number: None

PATIENT

DRUGS (2)
  1. ZEMURON [Suspect]
     Indication: GENERAL ANAESTHESIA
  2. ZEMURON [Suspect]

REACTIONS (2)
  - DELAYED RECOVERY FROM ANAESTHESIA [None]
  - PHARMACEUTICAL PRODUCT COMPLAINT [None]
